FAERS Safety Report 15482079 (Version 1)
Quarter: 2018Q4

REPORT INFORMATION
  Report Type: Spontaneous
  Country: US (occurrence: US)
  Receive Date: 20181010
  Receipt Date: 20181010
  Transmission Date: 20190205
  Serious: Yes (Hospitalization)
  Sender: FDA-Public Use
  Company Number: US-JNJFOC-20181003317

PATIENT
  Age: 78 Year
  Sex: Female
  Weight: 66.23 kg

DRUGS (4)
  1. ATORVASTATIN [Concomitant]
     Active Substance: ATORVASTATIN
     Indication: BLOOD CHOLESTEROL ABNORMAL
     Route: 065
  2. LEVOTHYROXINE. [Concomitant]
     Active Substance: LEVOTHYROXINE
     Indication: HYPOTHYROIDISM
     Route: 065
  3. XARELTO [Suspect]
     Active Substance: RIVAROXABAN
     Indication: CEREBROVASCULAR ACCIDENT PROPHYLAXIS
     Route: 048
     Dates: start: 20180401
  4. METOPROLOL. [Concomitant]
     Active Substance: METOPROLOL
     Indication: CARDIAC DISORDER
     Route: 065

REACTIONS (12)
  - Peripheral swelling [Not Recovered/Not Resolved]
  - Hyperhidrosis [Unknown]
  - Vomiting [Unknown]
  - Diarrhoea [Unknown]
  - Vasodilatation [Not Recovered/Not Resolved]
  - Abdominal pain [Unknown]
  - Arteriosclerosis [Unknown]
  - Headache [Unknown]
  - Atrial fibrillation [Unknown]
  - Swelling [Unknown]
  - Gingival bleeding [Recovered/Resolved]
  - Weight increased [Unknown]

NARRATIVE: CASE EVENT DATE: 2018
